FAERS Safety Report 15146419 (Version 1)
Quarter: 2018Q4

REPORT INFORMATION
  Report Type: Spontaneous
  Country: US (occurrence: US)
  Receive Date: 20180715
  Receipt Date: 20180715
  Transmission Date: 20190204
  Serious: No
  Sender: FDA-Public Use
  Company Number: US-CEDIPROF, INC.-2052044

PATIENT
  Age: 82 Year
  Sex: Male
  Weight: 72.73 kg

DRUGS (11)
  1. LEVO-T [Suspect]
     Active Substance: LEVOTHYROXINE SODIUM
  2. DONEPEZIL. [Concomitant]
     Active Substance: DONEPEZIL
  3. FINASTERIDE. [Concomitant]
     Active Substance: FINASTERIDE
  4. VITAMIN B COMPLEX [Concomitant]
     Active Substance: CYANOCOBALAMIN\DEXPANTHENOL\NIACINAMIDE\PYRIDOXINE HYDROCHLORIDE\RIBOFLAVIN 5^-PHOSPHATE SODIUM\THIAMINE HYDROCHLORIDE\VITAMIN B COMPLEX
  5. CALCIUM ACETATE. [Concomitant]
     Active Substance: CALCIUM ACETATE
  6. TYLENOL [Concomitant]
     Active Substance: ACETAMINOPHEN
  7. ALENDRONATE [Concomitant]
     Active Substance: ALENDRONATE SODIUM
  8. RUVOSTATIN [Concomitant]
  9. TAMSULOSIN HYDROCHLORIDE. [Concomitant]
     Active Substance: TAMSULOSIN HYDROCHLORIDE
  10. TRAMADOL. [Concomitant]
     Active Substance: TRAMADOL
  11. MAGNESIUM [Concomitant]
     Active Substance: MAGNESIUM

REACTIONS (1)
  - Throat irritation [Not Recovered/Not Resolved]
